FAERS Safety Report 7887762-6 (Version None)
Quarter: 2011Q4

REPORT INFORMATION
  Report Type: 
  Country: None (occurrence: None)
  Receive Date: 20111101
  Receipt Date: 20111018
  Transmission Date: 20120403
  Serious: Yes (Hospitalization)
  Sender: FDA-Public Use
  Company Number: 11-241C

PATIENT
  Age: 40 Year
  Sex: Female

DRUGS (1)
  1. CETIRIZINE [Suspect]
     Indication: ALLERGIC SINUSITIS
     Dosage: 10 MG/QD

REACTIONS (5)
  - DYSPHONIA [None]
  - DYSPHAGIA [None]
  - DIPLOPIA [None]
  - ASTHENIA [None]
  - FACIAL PARESIS [None]
